FAERS Safety Report 21305782 (Version 1)
Quarter: 2022Q3

REPORT INFORMATION
  Report Type: Spontaneous
  Country: US (occurrence: US)
  Receive Date: 20220908
  Receipt Date: 20220908
  Transmission Date: 20221027
  Serious: No
  Sender: FDA-Public Use
  Company Number: US-BAUSCH-BL-2022-021580

PATIENT
  Age: 30 Year
  Sex: Male

DRUGS (4)
  1. ATIVAN [Suspect]
     Active Substance: LORAZEPAM
     Indication: Product used for unknown indication
     Route: 065
     Dates: end: 2022
  2. ATIVAN [Suspect]
     Active Substance: LORAZEPAM
     Route: 065
     Dates: start: 2022
  3. CAPLYTA [Suspect]
     Active Substance: LUMATEPERONE
     Indication: Schizoaffective disorder bipolar type
     Dosage: 1/2 CAPSULE IN APPLE SAUCE
     Route: 048
     Dates: start: 20220606, end: 20220606
  4. KEPPRA [Concomitant]
     Active Substance: LEVETIRACETAM
     Indication: Product used for unknown indication

REACTIONS (9)
  - Feeling abnormal [Recovered/Resolved]
  - Performance status decreased [Recovered/Resolved]
  - Communication disorder [Recovered/Resolved]
  - Fear [Recovered/Resolved]
  - Drug withdrawal syndrome [Recovered/Resolved]
  - Restlessness [Recovered/Resolved]
  - Tremor [Recovered/Resolved]
  - Refusal of treatment by patient [Not Recovered/Not Resolved]
  - Therapy interrupted [Unknown]

NARRATIVE: CASE EVENT DATE: 20220101
